FAERS Safety Report 10886087 (Version 1)
Quarter: 2015Q1

REPORT INFORMATION
  Report Type: Spontaneous
  Country: TR (occurrence: TR)
  Receive Date: 20150304
  Receipt Date: 20150304
  Transmission Date: 20150721
  Serious: Yes (Other)
  Sender: FDA-Public Use
  Company Number: TR-BAXTER-2015BAX011095

PATIENT
  Sex: Male

DRUGS (7)
  1. CEFTRIAXONE. [Suspect]
     Active Substance: CEFTRIAXONE
     Indication: BACTERAEMIA
  2. KIOVIG [Suspect]
     Active Substance: HUMAN IMMUNOGLOBULIN G
     Indication: KAWASAKI^S DISEASE
     Route: 042
  3. ASPIRIN. [Suspect]
     Active Substance: ASPIRIN
     Route: 048
  4. ASPIRIN. [Suspect]
     Active Substance: ASPIRIN
     Indication: KAWASAKI^S DISEASE
     Route: 048
  5. AMPICILLIN [Suspect]
     Active Substance: AMPICILLIN
     Indication: BACTERAEMIA
  6. AMPICILLIN [Suspect]
     Active Substance: AMPICILLIN
     Indication: EVIDENCE BASED TREATMENT
     Route: 042
  7. CEFTRIAXONE. [Suspect]
     Active Substance: CEFTRIAXONE
     Indication: EVIDENCE BASED TREATMENT
     Route: 065

REACTIONS (1)
  - Coronary artery aneurysm [Unknown]
